FAERS Safety Report 24968688 (Version 1)
Quarter: 2025Q1

REPORT INFORMATION
  Report Type: Report from Study
  Country: US (occurrence: US)
  Receive Date: 20250214
  Receipt Date: 20250214
  Transmission Date: 20250409
  Serious: Yes (Other)
  Sender: AMNEAL
  Company Number: US-AMNEAL PHARMACEUTICALS-2024-AMRX-01443

PATIENT
  Sex: Male
  Weight: 79.365 kg

DRUGS (1)
  1. CARBIDOPA\LEVODOPA [Suspect]
     Active Substance: CARBIDOPA\LEVODOPA
     Indication: Parkinson^s disease
     Dosage: 195/48.75 MG, 3 CAPSULES, 3 /DAY
     Route: 048

REACTIONS (2)
  - Parkinson^s disease [Unknown]
  - Gait disturbance [Unknown]
